FAERS Safety Report 5690999-8 (Version None)
Quarter: 2008Q2

REPORT INFORMATION
  Report Type: 
  Country: None (occurrence: None)
  Receive Date: 20080401
  Receipt Date: 20080320
  Transmission Date: 20081010
  Serious: Yes (Other)
  Sender: FDA-Public Use
  Company Number: US-PFIZER INC-2006138185

PATIENT
  Sex: Female
  Weight: 63.5 kg

DRUGS (15)
  1. CHANTIX [Suspect]
     Indication: EX-SMOKER
  2. SPIRIVA [Suspect]
  3. KONSYL [Concomitant]
  4. EFFEXOR [Concomitant]
     Dosage: DAILY DOSE:5MG
  5. AMBIEN [Concomitant]
     Dosage: DAILY DOSE:10MG-FREQ:AT BEDTIME
  6. ZETIA [Concomitant]
     Dosage: DAILY DOSE:10MG
  7. ALPRAZOLAM [Concomitant]
     Dosage: DAILY DOSE:.5MG
  8. MONTELUKAST SODIUM [Concomitant]
     Dosage: DAILY DOSE:10MG
  9. PREVACID [Concomitant]
     Dosage: DAILY DOSE:30MG
  10. NASONEX [Concomitant]
  11. XANAX [Concomitant]
  12. POLYETHYLENE GLYCOL [Concomitant]
  13. ICAPS [Concomitant]
  14. ADVAIR DISKUS 100/50 [Concomitant]
  15. ALBUTEROL [Concomitant]

REACTIONS (13)
  - ANXIETY [None]
  - CARDIAC DISORDER [None]
  - COUGH [None]
  - FALL [None]
  - FEELING ABNORMAL [None]
  - FUNGAL INFECTION [None]
  - HYPOTENSION [None]
  - JOINT SWELLING [None]
  - LOWER RESPIRATORY TRACT INFECTION [None]
  - MYALGIA [None]
  - NAUSEA [None]
  - PAIN IN EXTREMITY [None]
  - SELF-INJURIOUS IDEATION [None]
